FAERS Safety Report 9981499 (Version 1)
Quarter: 2014Q1

REPORT INFORMATION
  Report Type: Spontaneous
  Country: US (occurrence: US)
  Receive Date: 20140307
  Receipt Date: 20140307
  Transmission Date: 20141002
  Serious: No
  Sender: FDA-Public Use
  Company Number: US-GLAXOSMITHKLINE-A1060042A

PATIENT
  Sex: Female

DRUGS (1)
  1. FABIOR [Suspect]
     Indication: ACNE
     Dosage: 1APP PER DAY
     Route: 061

REACTIONS (2)
  - Burning sensation [Unknown]
  - Erythema [Unknown]
